FAERS Safety Report 24216413 (Version 1)
Quarter: 2024Q3

REPORT INFORMATION
  Report Type: Spontaneous
  Country: US (occurrence: US)
  Receive Date: 20240816
  Receipt Date: 20240816
  Transmission Date: 20241016
  Serious: No
  Sender: BRISTOL MYERS SQUIBB
  Company Number: US-BRISTOL-MYERS SQUIBB COMPANY-2024-129439

PATIENT
  Age: 48 Year
  Sex: Male

DRUGS (1)
  1. SPRYCEL [Suspect]
     Active Substance: DASATINIB
     Indication: Essential thrombocythaemia
     Route: 048
     Dates: start: 202407

REACTIONS (3)
  - Stomatitis [Unknown]
  - Diarrhoea [Unknown]
  - Constipation [Unknown]
